FAERS Safety Report 9773659 (Version 1)
Quarter: 2013Q4

REPORT INFORMATION
  Report Type: Spontaneous
  Country: US (occurrence: US)
  Receive Date: 20131219
  Receipt Date: 20131219
  Transmission Date: 20140711
  Serious: Yes (Other)
  Sender: FDA-Public Use
  Company Number: US-ACORDA-ACO_100775_2013

PATIENT
  Sex: Female
  Weight: 108.84 kg

DRUGS (7)
  1. ZANAFLEX [Suspect]
     Indication: HYPOTONIA
     Dosage: 4 MG, TID
  2. PRISTIQ [Suspect]
     Indication: DEPRESSION
     Dosage: 100 MG, QD
  3. BENADRYL [Suspect]
     Indication: HYPERSENSITIVITY
     Dosage: 25 MG, BID
  4. LASIX [Suspect]
     Indication: FLUID RETENTION
     Dosage: 40 MG, QD
     Route: 048
  5. VISTARIL [Suspect]
     Indication: ANXIETY
     Dosage: 50 MG TID AND 100 MG HS
     Route: 048
  6. MECLIZINE HCL [Suspect]
     Indication: DIZZINESS
     Dosage: 25 MG, PRN
  7. ALL OTHER THERAPEUTIC PRODUCTS [Concomitant]
     Indication: PRODUCT USED FOR UNKNOWN INDICATION

REACTIONS (4)
  - Diabetes mellitus [Unknown]
  - Blood cholesterol abnormal [Recovered/Resolved]
  - Dry throat [Not Recovered/Not Resolved]
  - Hunger [Unknown]
